FAERS Safety Report 7722062-6 (Version None)
Quarter: 2011Q3

REPORT INFORMATION
  Report Type: 
  Country: None (occurrence: None)
  Receive Date: 20110831
  Receipt Date: 20110824
  Transmission Date: 20111222
  Serious: Yes (Other)
  Sender: FDA-Public Use
  Company Number: US-ABBOTT-11P-163-0848968-00

PATIENT
  Sex: Female
  Weight: 65.83 kg

DRUGS (5)
  1. MULTI-VITAMINS [Concomitant]
     Indication: VITAMIN SUPPLEMENTATION
  2. HUMIRA [Suspect]
     Route: 058
     Dates: start: 20110801
  3. IMURAN [Concomitant]
     Indication: CROHN'S DISEASE
  4. PREDNISONE [Concomitant]
     Indication: CROHN'S DISEASE
  5. HUMIRA [Suspect]
     Indication: CROHN'S DISEASE
     Route: 058
     Dates: end: 20101101

REACTIONS (4)
  - CONTUSION [None]
  - SMEAR CERVIX ABNORMAL [None]
  - ANAL ABSCESS [None]
  - DIARRHOEA [None]
